FAERS Safety Report 9155869 (Version 1)
Quarter: 2013Q1

REPORT INFORMATION
  Report Type: Spontaneous
  Country: US (occurrence: US)
  Receive Date: 20130311
  Receipt Date: 20130311
  Transmission Date: 20140127
  Serious: Yes (Other)
  Sender: FDA-Public Use
  Company Number: US-MYLANLABS-2013S1004576

PATIENT
  Age: 59 Year
  Sex: Male

DRUGS (6)
  1. KETAMINE [Suspect]
     Indication: SEDATION
     Dosage: 100MG (APPROX 1 MG/KG) OVER 20-30S
     Route: 042
  2. MIDAZOLAM [Concomitant]
     Indication: SEDATION
     Dosage: 2MG
     Route: 042
  3. IPRATROPIUM BROMIDE [Concomitant]
     Indication: CHRONIC OBSTRUCTIVE PULMONARY DISEASE
     Route: 055
  4. SALBUTAMOL [Concomitant]
     Indication: CHRONIC OBSTRUCTIVE PULMONARY DISEASE
     Route: 055
  5. METHYLPREDNISOLONE [Concomitant]
     Indication: CHRONIC OBSTRUCTIVE PULMONARY DISEASE
     Dosage: 125MG
     Route: 042
  6. MAGNESIUM [Concomitant]
     Indication: CHRONIC OBSTRUCTIVE PULMONARY DISEASE
     Dosage: 2MG
     Route: 042

REACTIONS (1)
  - Waxy flexibility [Recovered/Resolved]
